FAERS Safety Report 6202430-4 (Version None)
Quarter: 2009Q2

REPORT INFORMATION
  Report Type: 
  Country: None (occurrence: None)
  Receive Date: 20090521
  Receipt Date: 20090521
  Transmission Date: 20091009
  Serious: No
  Sender: FDA-Public Use
  Company Number: None

PATIENT
  Sex: Female
  Weight: 53.0709 kg

DRUGS (3)
  1. ACTONEL [Suspect]
     Indication: OSTEOPENIA
     Dosage: 150 1 A MONTH
     Dates: start: 20090201
  2. ACTONEL [Suspect]
     Indication: OSTEOPENIA
     Dosage: 150 1 A MONTH
     Dates: start: 20090301
  3. ACTONEL [Suspect]
     Indication: OSTEOPENIA
     Dosage: 150 1 A MONTH
     Dates: start: 20090401

REACTIONS (5)
  - ABDOMINAL DISCOMFORT [None]
  - ABDOMINAL PAIN [None]
  - ARTHRALGIA [None]
  - DECREASED APPETITE [None]
  - GASTRIC DISORDER [None]
